FAERS Safety Report 4528360-1 (Version None)
Quarter: 2004Q4

REPORT INFORMATION
  Report Type: 
  Country: None (occurrence: None)
  Receive Date: 20041130
  Receipt Date: 20031204
  Transmission Date: 20050328
  Serious: Yes (Hospitalization)
  Sender: FDA-Public Use
  Company Number: WAES 0312USA00549

PATIENT
  Sex: Female

DRUGS (1)
  1. CLINORIL [Suspect]
     Indication: PAIN
     Dosage: PO
     Route: 048
     Dates: start: 20031001

REACTIONS (1)
  - STEVENS-JOHNSON SYNDROME [None]
